FAERS Safety Report 10913446 (Version 1)
Quarter: 2015Q1

REPORT INFORMATION
  Report Type: Spontaneous
  Country: US (occurrence: US)
  Receive Date: 20150313
  Receipt Date: 20150313
  Transmission Date: 20150721
  Serious: No
  Sender: FDA-Public Use
  Company Number: US-ASTRAZENECA-2008BM17286

PATIENT
  Age: 26131 Day
  Sex: Male
  Weight: 79.4 kg

DRUGS (6)
  1. EXENATIDE [Concomitant]
     Active Substance: EXENATIDE
  2. GLIPIZIDE. [Concomitant]
     Active Substance: GLIPIZIDE
  3. BYETTA [Suspect]
     Active Substance: EXENATIDE
     Indication: TYPE 2 DIABETES MELLITUS
     Route: 058
     Dates: end: 20150101
  4. BYETTA [Suspect]
     Active Substance: EXENATIDE
     Indication: TYPE 2 DIABETES MELLITUS
     Route: 058
     Dates: start: 200811, end: 200812
  5. BYDUREON [Suspect]
     Active Substance: EXENATIDE
     Route: 058
     Dates: start: 20150101
  6. BYETTA [Suspect]
     Active Substance: EXENATIDE
     Indication: TYPE 2 DIABETES MELLITUS
     Route: 058
     Dates: start: 200812

REACTIONS (3)
  - Protein urine present [Not Recovered/Not Resolved]
  - Injection site rash [Not Recovered/Not Resolved]
  - Back injury [Recovering/Resolving]

NARRATIVE: CASE EVENT DATE: 200812
